FAERS Safety Report 6049727-9 (Version None)
Quarter: 2009Q1

REPORT INFORMATION
  Report Type: 
  Country: None (occurrence: None)
  Receive Date: 20090121
  Receipt Date: 20080620
  Transmission Date: 20090719
  Serious: No
  Sender: FDA-Public Use
  Company Number: HQWYE672703MAY04

PATIENT
  Age: 53 Year
  Sex: Female

DRUGS (7)
  1. PREMPRO [Suspect]
     Indication: HORMONE REPLACEMENT THERAPY
     Dosage: UNSPECIFIED DOSAGE INTERMITTENTLY DURING THE 1990'S, ORAL
     Route: 048
     Dates: start: 19940101, end: 20020101
  2. ESTRACE [Suspect]
     Dosage: ORAL
     Route: 048
     Dates: start: 20030601
  3. ESTRATEST [Suspect]
  4. PREMARIN [Suspect]
     Dosage: UNSPECIFIED DOSE ; UNSPECIFIED DOSE
     Dates: start: 19890101, end: 19940101
  5. PREMARIN [Suspect]
     Dosage: UNSPECIFIED DOSE ; UNSPECIFIED DOSE
     Dates: start: 19890101, end: 19940101
  6. PROMETRIUM [Suspect]
  7. PROVERA [Suspect]
     Dosage: ORAL
     Route: 048
     Dates: start: 19890101, end: 19940101

REACTIONS (4)
  - CRYING [None]
  - DEPRESSION [None]
  - HYPERTENSION [None]
  - NERVOUSNESS [None]
